FAERS Safety Report 11434456 (Version 1)
Quarter: 2015Q3

REPORT INFORMATION
  Report Type: Spontaneous
  Country: US (occurrence: None)
  Receive Date: 20150828
  Receipt Date: 20150828
  Transmission Date: 20151125
  Serious: No
  Sender: FDA-Public Use
  Company Number: None

PATIENT
  Age: 56 Year
  Sex: Male
  Weight: 122.47 kg

DRUGS (5)
  1. IRON [Concomitant]
     Active Substance: IRON
  2. MULTIVITAMIN [Concomitant]
     Active Substance: VITAMINS
  3. NIACIN. [Concomitant]
     Active Substance: NIACIN
  4. FLAXSEED [Concomitant]
     Active Substance: FLAX SEED
  5. 5.00 PGE (ALPROSTADIL) [Suspect]
     Active Substance: ALPROSTADIL
     Indication: ERECTILE DYSFUNCTION
     Route: 011
     Dates: start: 20150620, end: 20150822

REACTIONS (2)
  - Drug dispensing error [None]
  - Drug ineffective [None]

NARRATIVE: CASE EVENT DATE: 20150701
